FAERS Safety Report 12798027 (Version 1)
Quarter: 2016Q3

REPORT INFORMATION
  Report Type: Spontaneous
  Country: US (occurrence: US)
  Receive Date: 20160929
  Receipt Date: 20160929
  Transmission Date: 20161109
  Serious: Yes (Hospitalization)
  Sender: FDA-Public Use
  Company Number: None

PATIENT
  Age: 12 Year
  Sex: Male
  Weight: 47 kg

DRUGS (9)
  1. OMEPRAZOLE. [Concomitant]
     Active Substance: OMEPRAZOLE
  2. VITAMIN D3 [Concomitant]
     Active Substance: CHOLECALCIFEROL
  3. REMICADE [Suspect]
     Active Substance: INFLIXIMAB
     Indication: INFLAMMATORY BOWEL DISEASE
     Dosage: ?          OTHER FREQUENCY:MONTHLY;?
     Route: 040
     Dates: start: 20150930, end: 20160428
  4. KETOIFEN FUMARATE [Concomitant]
  5. MPNTELUKAST [Concomitant]
  6. ENTYVIO [Suspect]
     Active Substance: VEDOLIZUMAB
     Indication: INFLAMMATORY BOWEL DISEASE
     Dosage: ?          OTHER FREQUENCY:MONTHLY;?
     Route: 040
     Dates: start: 20160526, end: 20160709
  7. IRON [Concomitant]
     Active Substance: IRON
  8. HYDROCORTISDONE 5 MG [Concomitant]
  9. CROMOLYN SODIUM. [Concomitant]
     Active Substance: CROMOLYN SODIUM

REACTIONS (1)
  - Lung infection [None]

NARRATIVE: CASE EVENT DATE: 20160806
